FAERS Safety Report 20974264 (Version 1)
Quarter: 2022Q2

REPORT INFORMATION
  Report Type: Spontaneous
  Country: US (occurrence: None)
  Receive Date: 20220616
  Receipt Date: 20220616
  Transmission Date: 20220721
  Serious: Yes (Hospitalization)
  Sender: FDA-Public Use
  Company Number: None

PATIENT
  Sex: Male

DRUGS (1)
  1. NEULASTA [Suspect]
     Active Substance: PEGFILGRASTIM
     Indication: Soft tissue sarcoma
     Dosage: 6 MG EVERY 21 DAYS SUBCUTANEOUS?
     Route: 058
     Dates: start: 20220128

REACTIONS (3)
  - Disease recurrence [None]
  - Arthralgia [None]
  - Inflammation [None]
